FAERS Safety Report 4689451-8 (Version None)
Quarter: 2005Q2

REPORT INFORMATION
  Report Type: 
  Country: None (occurrence: None)
  Receive Date: 20050311
  Receipt Date: 20050311
  Transmission Date: 20051028
  Serious: Yes (Other)
  Sender: FDA-Public Use
  Company Number: None

PATIENT
  Age: 40 Year
  Sex: Female

DRUGS (1)
  1. PERCOCET [Suspect]
     Indication: SICKLE CELL ANAEMIA
     Dosage: PO Q 6 HRS
     Route: 048

REACTIONS (2)
  - PHARMACEUTICAL PRODUCT COUNTERFEIT [None]
  - RASH PRURITIC [None]
